FAERS Safety Report 8314755-7 (Version None)
Quarter: 2012Q2

REPORT INFORMATION
  Report Type: 
  Country: None (occurrence: None)
  Receive Date: 20120426
  Receipt Date: 20120423
  Transmission Date: 20120825
  Serious: Yes (Death, Hospitalization)
  Sender: FDA-Public Use
  Company Number: GB-ELI_LILLY_AND_COMPANY-GB201203005525

PATIENT
  Sex: Female
  Weight: 175 kg

DRUGS (13)
  1. PIOGLITAZONE [Concomitant]
     Dosage: 45 MG, QD
  2. SIMVASTATIN [Concomitant]
  3. BYDUREON [Suspect]
     Indication: TYPE 2 DIABETES MELLITUS
     Dosage: 2 MG, WEEKLY (1/W)
     Route: 058
     Dates: start: 20120217, end: 20120224
  4. TRANEXAMIC ACID [Concomitant]
     Indication: MENORRHAGIA
     Dosage: UNK, PRN
  5. ORLISTAT [Concomitant]
  6. METFORMIN HCL [Concomitant]
     Dosage: 1 G, BID
  7. VENTOLIN                                /SCH/ [Concomitant]
  8. CITALOPRAM HYDROBROMIDE [Concomitant]
     Dosage: 40 DF, UNKNOWN
  9. ENALAPRIL MALEATE [Concomitant]
  10. DICLOFENAC [Concomitant]
  11. ACETAMINOPHEN AND CODEINE PHOSPHATE [Concomitant]
  12. BECLOMETHASONE DIPROPIONATE [Concomitant]
  13. CO-AMILOFRUSE [Concomitant]

REACTIONS (2)
  - SEPSIS [None]
  - URINARY TRACT INFECTION [None]
